FAERS Safety Report 21887731 (Version 1)
Quarter: 2023Q1

REPORT INFORMATION
  Report Type: Other
  Country: ES (occurrence: None)
  Receive Date: 20230120
  Receipt Date: 20230120
  Transmission Date: 20230417
  Serious: Yes (Other)
  Sender: FDA-Public Use
  Company Number: ES-ROCHE-3265916

PATIENT
  Age: 44 Year
  Sex: Male

DRUGS (2)
  1. ATEZOLIZUMAB [Suspect]
     Active Substance: ATEZOLIZUMAB
     Indication: Hepatic cancer
     Dosage: TOTAL OF TWO CYCLES
     Route: 065
  2. BEVACIZUMAB [Concomitant]
     Active Substance: BEVACIZUMAB
     Indication: Hepatic cancer

REACTIONS (3)
  - Type 1 diabetes mellitus [Unknown]
  - Diabetic ketoacidosis [Unknown]
  - Thyroiditis [Recovering/Resolving]
